FAERS Safety Report 24580448 (Version 2)
Quarter: 2024Q4

REPORT INFORMATION
  Report Type: Spontaneous
  Country: FR (occurrence: FR)
  Receive Date: 20241105
  Receipt Date: 20241111
  Transmission Date: 20250115
  Serious: Yes (Other)
  Sender: PFIZER
  Company Number: None

PATIENT
  Age: 41 Year
  Sex: Female
  Weight: 56 kg

DRUGS (5)
  1. TRAZIMERA [Suspect]
     Active Substance: TRASTUZUMAB-QYYP
     Indication: Breast cancer
     Dosage: 4 MG/KG, SINGLE (D1)
     Route: 042
     Dates: start: 20240322, end: 20240322
  2. TRAZIMERA [Suspect]
     Active Substance: TRASTUZUMAB-QYYP
     Dosage: 2 MG/KG (D8 AND D18)
     Route: 042
     Dates: start: 20240329, end: 20240408
  3. TRAZIMERA [Suspect]
     Active Substance: TRASTUZUMAB-QYYP
     Dosage: 6 MG/KG EVERY 21 DAYS
     Route: 042
     Dates: start: 20240415, end: 20240527
  4. KADCYLA [Suspect]
     Active Substance: ADO-TRASTUZUMAB EMTANSINE
     Indication: Breast cancer
     Dosage: 3.6 MG/KG EVERY 21 DAYS
     Route: 042
     Dates: start: 20240812
  5. PACLITAXEL [Suspect]
     Active Substance: PACLITAXEL
     Indication: Breast cancer
     Dosage: 80 MG/M2 EVERY 7 DAYS
     Route: 042
     Dates: start: 20240322, end: 20240610

REACTIONS (1)
  - Sarcoidosis [Not Recovered/Not Resolved]

NARRATIVE: CASE EVENT DATE: 20240902
